FAERS Safety Report 16315437 (Version 1)
Quarter: 2019Q2

REPORT INFORMATION
  Report Type: Spontaneous
  Country: US (occurrence: US)
  Receive Date: 20190515
  Receipt Date: 20190515
  Transmission Date: 20190711
  Serious: No
  Sender: FDA-Public Use
  Company Number: US-SA-2019SA124311

PATIENT
  Sex: Female

DRUGS (10)
  1. PRALUENT [Suspect]
     Active Substance: ALIROCUMAB
     Indication: HYPERLIPIDAEMIA
  2. CEVIMELINE HYDROCHLORIDE. [Concomitant]
     Active Substance: CEVIMELINE HYDROCHLORIDE
  3. ALPRAZOLAM. [Concomitant]
     Active Substance: ALPRAZOLAM
  4. PRALUENT [Suspect]
     Active Substance: ALIROCUMAB
     Indication: HYPERTENSIVE HEART DISEASE
     Dosage: 150 MG, QOW
     Route: 058
     Dates: start: 20181206
  5. LOSARTAN AND HYDROCHLOROTHIAZIDE [Concomitant]
     Active Substance: HYDROCHLOROTHIAZIDE\LOSARTAN POTASSIUM
  6. MELATONIN [Concomitant]
     Active Substance: MELATONIN
  7. TURMERIC [CURCUMA LONGA] [Concomitant]
  8. CARISOPRODOL. [Concomitant]
     Active Substance: CARISOPRODOL
  9. COQ 10 [Concomitant]
     Active Substance: UBIDECARENONE
  10. RYVENT [Concomitant]
     Active Substance: CARBINOXAMINE MALEATE

REACTIONS (6)
  - Pain in extremity [Unknown]
  - Musculoskeletal pain [Unknown]
  - Neck pain [Unknown]
  - Asthenia [Unknown]
  - Muscular weakness [Unknown]
  - Feeling abnormal [Unknown]
